FAERS Safety Report 6220622-5 (Version None)
Quarter: 2009Q2

REPORT INFORMATION
  Report Type: 
  Country: None (occurrence: None)
  Receive Date: 20090610
  Receipt Date: 20090602
  Transmission Date: 20091009
  Serious: Yes (Other)
  Sender: FDA-Public Use
  Company Number: US-ROCHE-633570

PATIENT
  Sex: Female

DRUGS (4)
  1. BONIVA [Suspect]
     Indication: OSTEOPENIA
     Route: 048
     Dates: start: 20081110, end: 20090510
  2. SIMVASTATIN [Concomitant]
     Dosage: FREQUENCY: EVERY NIGHT
     Route: 048
     Dates: start: 20080101
  3. AVALIDE [Concomitant]
     Indication: HYPERTENSION
     Dosage: DOSE: 300/25 QD
     Route: 048
     Dates: start: 20080101
  4. LOTREL [Concomitant]
     Indication: HYPERTENSION
     Dosage: 10/40 QD
     Route: 048
     Dates: start: 20080101

REACTIONS (4)
  - HEADACHE [None]
  - PNEUMONIA [None]
  - SINUS CONGESTION [None]
  - WHEEZING [None]
